FAERS Safety Report 8816398 (Version 1)
Quarter: 2012Q4

REPORT INFORMATION
  Report Type: Spontaneous
  Country: US (occurrence: None)
  Receive Date: 20120928
  Receipt Date: 20120928
  Transmission Date: 20130627
  Serious: Yes (Hospitalization)
  Sender: FDA-Public Use
  Company Number: None

PATIENT
  Age: 88 Year
  Sex: Female
  Weight: 56.3 kg

DRUGS (9)
  1. PLAVIX [Suspect]
     Indication: CVA
     Dosage: chronic
     Route: 048
  2. ASA [Suspect]
     Dosage: CHRONIC
     Route: 048
  3. LODINE [Suspect]
     Route: 048
  4. ULTRAM [Concomitant]
  5. HCTZ [Concomitant]
  6. MIRALAX [Concomitant]
  7. SYNTHROID [Concomitant]
  8. LODINE [Concomitant]
  9. BENADRYL [Concomitant]

REACTIONS (3)
  - Anaemia [None]
  - Upper gastrointestinal haemorrhage [None]
  - Gastric ulcer [None]
